FAERS Safety Report 8471266-6 (Version None)
Quarter: 2012Q2

REPORT INFORMATION
  Report Type: 
  Country: None (occurrence: None)
  Receive Date: 20120621
  Receipt Date: 20120613
  Transmission Date: 20120825
  Serious: Yes (Other)
  Sender: FDA-Public Use
  Company Number: ADR-2010-9092

PATIENT
  Sex: Male

DRUGS (1)
  1. LIORESAL [Suspect]
     Indication: MUSCLE SPASTICITY

REACTIONS (5)
  - SEXUAL DYSFUNCTION [None]
  - NO THERAPEUTIC RESPONSE [None]
  - HYPOAESTHESIA [None]
  - OVERDOSE [None]
  - PRURITUS [None]
